FAERS Safety Report 9204869 (Version 1)
Quarter: 2013Q1

REPORT INFORMATION
  Report Type: Spontaneous
  Country: US (occurrence: None)
  Receive Date: 20120709
  Receipt Date: 20120709
  Transmission Date: 20140127
  Serious: Yes (Other)
  Sender: FDA-Public Use
  Company Number: PHEH2011US04291

PATIENT
  Age: 54 Year
  Sex: Female
  Weight: 53.52 kg

DRUGS (1)
  1. GLEEVEC (IMATINIB) [Suspect]
     Indication: GASTROINTESTINAL STROMAL TUMOUR
     Dates: start: 201108

REACTIONS (10)
  - Gastrointestinal stromal tumour [None]
  - Neoplasm malignant [None]
  - Toothache [None]
  - Procedural pain [None]
  - Pain in extremity [None]
  - Nausea [None]
  - Diarrhoea [None]
  - Fatigue [None]
  - Ecchymosis [None]
  - Contusion [None]
